FAERS Safety Report 9137902 (Version 1)
Quarter: 2013Q1

REPORT INFORMATION
  Report Type: Report from Study
  Country: US (occurrence: US)
  Receive Date: 20130304
  Receipt Date: 20130304
  Transmission Date: 20140127
  Serious: No
  Sender: FDA-Public Use
  Company Number: US-ABBOTT-12P-163-0945668-00

PATIENT
  Sex: Male
  Weight: 99.43 kg

DRUGS (9)
  1. ANDROGEL 1% [Suspect]
     Indication: BLOOD TESTOSTERONE DECREASED
     Dosage: SPORADICALLY
     Route: 061
     Dates: start: 201106, end: 201202
  2. ANDROGEL 1% [Suspect]
     Dosage: 4 PUMPS DAILY
     Route: 061
     Dates: start: 201202, end: 201206
  3. SIMVASTATIN [Concomitant]
     Indication: PRODUCT USED FOR UNKNOWN INDICATION
  4. POTASSIUM [Concomitant]
     Indication: PRODUCT USED FOR UNKNOWN INDICATION
  5. MULTIVITAMIN [Concomitant]
     Indication: PRODUCT USED FOR UNKNOWN INDICATION
  6. COCONUT OIL [Concomitant]
     Indication: PRODUCT USED FOR UNKNOWN INDICATION
  7. ASPIRIN [Concomitant]
     Indication: PRODUCT USED FOR UNKNOWN INDICATION
  8. CALCIUM + VITAMIN D3 [Concomitant]
     Indication: PRODUCT USED FOR UNKNOWN INDICATION
  9. VITAMIN D3 [Concomitant]
     Indication: PRODUCT USED FOR UNKNOWN INDICATION

REACTIONS (4)
  - Drug administration error [Recovered/Resolved]
  - Alopecia [Recovering/Resolving]
  - Sensation of heaviness [Recovered/Resolved]
  - Muscle spasms [Recovered/Resolved]
